FAERS Safety Report 4576085-9 (Version None)
Quarter: 2005Q1

REPORT INFORMATION
  Report Type: 
  Country: None (occurrence: None)
  Receive Date: 20050204
  Receipt Date: 20050131
  Transmission Date: 20050727
  Serious: Yes (Life-Threatening)
  Sender: FDA-Public Use
  Company Number: 2005SE00612

PATIENT
  Age: 60 Year
  Sex: Female

DRUGS (1)
  1. DIPRIVAN [Suspect]
     Indication: ANAESTHESIA
     Dosage: 1 G ONCE IV
     Route: 042
     Dates: start: 20041118, end: 20041118

REACTIONS (3)
  - BRONCHOSPASM [None]
  - INFUSION RELATED REACTION [None]
  - RESPIRATORY ARREST [None]
